FAERS Safety Report 5485298-3 (Version None)
Quarter: 2007Q4

REPORT INFORMATION
  Report Type: 
  Country: None (occurrence: None)
  Receive Date: 20071010
  Receipt Date: 20071010
  Transmission Date: 20080405
  Serious: Yes (Death)
  Sender: FDA-Public Use
  Company Number: None

PATIENT
  Age: 34 Year
  Sex: Male
  Weight: 61.2 kg

DRUGS (1)
  1. VESANOID [Suspect]
     Indication: LEUKAEMIA
     Dosage: 40 MG / 40 ML Q12HR - VIA NGTUBE-
     Route: 050
     Dates: start: 20070815, end: 20070816

REACTIONS (3)
  - BLOOD PRESSURE DECREASED [None]
  - CARDIO-RESPIRATORY ARREST [None]
  - HEART RATE DECREASED [None]
